FAERS Safety Report 9494489 (Version 1)
Quarter: 2013Q3

REPORT INFORMATION
  Report Type: Spontaneous
  Country: US (occurrence: None)
  Receive Date: 20130830
  Receipt Date: 20130830
  Transmission Date: 20140515
  Serious: Yes (Disabling, Other)
  Sender: FDA-Public Use
  Company Number: None

PATIENT
  Age: 18 Year
  Sex: Female
  Weight: 81.65 kg

DRUGS (4)
  1. RISPERDAL [Suspect]
     Dosage: STRENGTH:  25 MG?QUANTITY:  1 INJECTION?FREQUENCY:  ONCE EVERY 2 WKS?HOW:  NEEDLE?
  2. LITHIUM [Concomitant]
  3. RISPERDOL [Concomitant]
  4. MULTIPLE VITAMINS [Concomitant]

REACTIONS (2)
  - Hypersensitivity [None]
  - Joint stiffness [None]
